FAERS Safety Report 24734074 (Version 2)
Quarter: 2024Q4

REPORT INFORMATION
  Report Type: Report from Study
  Country: US (occurrence: US)
  Receive Date: 20241214
  Receipt Date: 20241231
  Transmission Date: 20250115
  Serious: No
  Sender: ROCHE
  Company Number: US-ROCHE-10000155858

PATIENT
  Age: 33 Year
  Sex: Female
  Weight: 74.84 kg

DRUGS (7)
  1. OCREVUS [Suspect]
     Active Substance: OCRELIZUMAB
     Indication: Relapsing multiple sclerosis
     Route: 042
     Dates: start: 20241208
  2. METHOCARBAMOL [Concomitant]
     Active Substance: METHOCARBAMOL
     Indication: Muscle spasms
     Dosage: 2 TABLETS MORNING, 1 TABLET AFTERNOON
     Route: 048
     Dates: start: 202410
  3. PALIPERIDONE PALMITATE [Concomitant]
     Active Substance: PALIPERIDONE PALMITATE
     Route: 058
     Dates: start: 2020
  4. OXCARBAZEPINE [Concomitant]
     Active Substance: OXCARBAZEPINE
     Indication: Post-traumatic stress disorder
     Route: 048
  5. ERGOCALCIFEROL [Concomitant]
     Active Substance: ERGOCALCIFEROL
     Indication: Vitamin D decreased
     Route: 048
     Dates: start: 202410
  6. METOPROLOL SUCCINATE [Concomitant]
     Active Substance: METOPROLOL SUCCINATE
     Indication: Palpitations
     Route: 048
     Dates: start: 2023
  7. MELATONIN [Concomitant]
     Active Substance: MELATONIN
     Dosage: 1-2 TABLETS AT BEDTIME AS NEEDED
     Route: 048
     Dates: start: 2022

REACTIONS (1)
  - Urinary tract infection [Not Recovered/Not Resolved]
